FAERS Safety Report 23585361 (Version 1)
Quarter: 2024Q1

REPORT INFORMATION
  Report Type: Report from Study
  Country: US (occurrence: US)
  Receive Date: 20240301
  Receipt Date: 20240301
  Transmission Date: 20240410
  Serious: Yes (Other)
  Sender: FDA-Public Use
  Company Number: US-ABBVIE-5655644

PATIENT
  Age: 49 Year
  Sex: Male

DRUGS (1)
  1. SKYRIZI [Suspect]
     Active Substance: RISANKIZUMAB-RZAA
     Indication: Crohn^s disease
     Route: 058
     Dates: start: 20230419, end: 20231120

REACTIONS (2)
  - Intestinal perforation [Not Recovered/Not Resolved]
  - Gastrointestinal scarring [Not Recovered/Not Resolved]

NARRATIVE: CASE EVENT DATE: 20230601
